FAERS Safety Report 8180807-8 (Version None)
Quarter: 2012Q1

REPORT INFORMATION
  Report Type: 
  Country: None (occurrence: None)
  Receive Date: 20120302
  Receipt Date: 20120228
  Transmission Date: 20120608
  Serious: Yes (Other)
  Sender: FDA-Public Use
  Company Number: CN-BAYER-2012-020144

PATIENT
  Age: 60 Year

DRUGS (1)
  1. AVELOX [Suspect]
     Route: 048

REACTIONS (1)
  - DEAFNESS NEUROSENSORY [None]
